FAERS Safety Report 25972742 (Version 1)
Quarter: 2025Q4

REPORT INFORMATION
  Report Type: Spontaneous
  Country: GB (occurrence: GB)
  Receive Date: 20251029
  Receipt Date: 20251029
  Transmission Date: 20260118
  Serious: Yes (Disabling, Other)
  Sender: MICRO LABS LIMITED
  Company Number: GB-MHRA-TPP392378C6336892YC1760366314134

PATIENT
  Age: 52 Year
  Sex: Female
  Weight: 102 kg

DRUGS (1)
  1. AMOXICILLIN [Suspect]
     Active Substance: AMOXICILLIN
     Indication: Ill-defined disorder
     Dates: start: 20250604

REACTIONS (5)
  - Chest discomfort [Unknown]
  - Rash [Recovered/Resolved]
  - Malaise [Unknown]
  - Dyspnoea [Unknown]
  - Drug hypersensitivity [Unknown]
